FAERS Safety Report 11242538 (Version 1)
Quarter: 2015Q3

REPORT INFORMATION
  Report Type: Spontaneous
  Country: US (occurrence: None)
  Receive Date: 20150701
  Receipt Date: 20150701
  Transmission Date: 20151125
  Serious: No
  Sender: FDA-Public Use
  Company Number: None

PATIENT
  Age: 51 Year
  Sex: Male

DRUGS (1)
  1. RIBAVIRIN 200 MG TAB [Suspect]
     Active Substance: RIBAVIRIN
     Indication: HEPATITIS C
     Dosage: 2 TABS QAM/ 3 TABS QPM, 2 TABS AM/3 PM

REACTIONS (1)
  - Pruritus [None]

NARRATIVE: CASE EVENT DATE: 20150512
